FAERS Safety Report 4642212-8 (Version None)
Quarter: 2005Q2

REPORT INFORMATION
  Report Type: 
  Country: None (occurrence: None)
  Receive Date: 20050420
  Receipt Date: 20050405
  Transmission Date: 20051028
  Serious: Yes (Death, Hospitalization)
  Sender: FDA-Public Use
  Company Number: USA041286728

PATIENT
  Age: 48 Year
  Sex: Male

DRUGS (3)
  1. CYMBALTA [Suspect]
     Indication: MAJOR DEPRESSION
     Dosage: 60 MG DAY
     Dates: start: 20040901, end: 20041101
  2. WELLBUTRIN [Concomitant]
  3. REMERON (MIRTAZAPINE ORIFARM) [Concomitant]

REACTIONS (4)
  - ALCOHOL USE [None]
  - MULTI-ORGAN FAILURE [None]
  - STRESS [None]
  - SUICIDE ATTEMPT [None]
